FAERS Safety Report 4409430-5 (Version None)
Quarter: 2004Q3

REPORT INFORMATION
  Report Type: 
  Country: None (occurrence: None)
  Receive Date: 20040723
  Receipt Date: 20040714
  Transmission Date: 20050211
  Serious: Yes (Other)
  Sender: FDA-Public Use
  Company Number: K200401050

PATIENT
  Age: 54 Year
  Sex: Female

DRUGS (2)
  1. KEMADRIN [Suspect]
     Indication: NAUSEA
  2. COMPAZINE [Suspect]
     Indication: NAUSEA

REACTIONS (4)
  - AGITATION [None]
  - CONFUSIONAL STATE [None]
  - DYSTONIA [None]
  - HALLUCINATION [None]
